FAERS Safety Report 7968083-X (Version None)
Quarter: 2011Q4

REPORT INFORMATION
  Report Type: 
  Country: None (occurrence: None)
  Receive Date: 20111209
  Receipt Date: 20111206
  Transmission Date: 20120403
  Serious: No
  Sender: FDA-Public Use
  Company Number: US-PFIZER INC-2011297986

PATIENT
  Sex: Male
  Weight: 22.676 kg

DRUGS (2)
  1. GENOTROPIN [Suspect]
     Dosage: 1.5 MG, 1X/DAY
     Route: 058
     Dates: start: 20111104, end: 20111206
  2. EPOETIN ALFA [Concomitant]
     Indication: RENAL DISORDER
     Dosage: UNK

REACTIONS (3)
  - NAUSEA [None]
  - VOMITING [None]
  - HEADACHE [None]
